FAERS Safety Report 5476208-3 (Version None)
Quarter: 2007Q4

REPORT INFORMATION
  Report Type: 
  Country: None (occurrence: None)
  Receive Date: 20071003
  Receipt Date: 20070924
  Transmission Date: 20080405
  Serious: Yes (Hospitalization, Other)
  Sender: FDA-Public Use
  Company Number: US-PURDUE-USA_2007_0028832

PATIENT
  Sex: Male

DRUGS (9)
  1. OXYCONTIN [Suspect]
     Indication: PAIN
     Dosage: 200 MG, DAILY
     Dates: start: 20020101, end: 20070807
  2. ZOLOFT [Concomitant]
     Indication: DEPRESSION
     Dosage: 100 MG, BID
     Dates: start: 20050615
  3. NEXIUM [Concomitant]
     Indication: GASTROOESOPHAGEAL REFLUX DISEASE
     Dosage: 40 MG, UNK
     Dates: start: 20070427
  4. ALDACTONE [Concomitant]
     Indication: DIURETIC THERAPY
     Dosage: 50 MG, BID
     Dates: start: 20060606
  5. AMBIEN [Concomitant]
     Indication: SLEEP DISORDER
     Dosage: 12.5 MG, HS
     Dates: start: 20070505
  6. FLEXERIL [Concomitant]
     Indication: MUSCLE RELAXANT THERAPY
     Dosage: 10 MG, TID
     Dates: start: 20060126
  7. DOCUSATE [Concomitant]
     Indication: CONSTIPATION
     Dosage: 100 MG, DAILY
     Dates: start: 20070907
  8. FUROSEMIDE [Concomitant]
     Indication: POLYURIA
     Dosage: 40 MG, DAILY
     Dates: start: 20070427
  9. LACTULOSE [Concomitant]
     Indication: CONSTIPATION
     Dates: start: 20051209

REACTIONS (2)
  - LOSS OF CONSCIOUSNESS [None]
  - UNRESPONSIVE TO STIMULI [None]
